FAERS Safety Report 4684906-4 (Version None)
Quarter: 2005Q2

REPORT INFORMATION
  Report Type: 
  Country: None (occurrence: None)
  Receive Date: 20050606
  Receipt Date: 20050606
  Transmission Date: 20051028
  Serious: No
  Sender: FDA-Public Use
  Company Number: None

PATIENT
  Age: 42 Year
  Sex: Female
  Weight: 83.9154 kg

DRUGS (2)
  1. BEXTRA [Suspect]
     Indication: ARTHRITIS
     Dosage: 1 TABLETS A DAY 047
     Dates: start: 20040415
  2. BEXTRA [Suspect]
     Indication: ARTHRITIS
     Dosage: 1 TABLETS A DAY 047
     Dates: start: 20050414

REACTIONS (5)
  - ABDOMINAL PAIN UPPER [None]
  - CHEST DISCOMFORT [None]
  - DYSPNOEA [None]
  - HYPERHIDROSIS [None]
  - PAIN IN EXTREMITY [None]
